FAERS Safety Report 17141212 (Version 1)
Quarter: 2019Q4

REPORT INFORMATION
  Report Type: Spontaneous
  Country: GB (occurrence: GB)
  Receive Date: 20191211
  Receipt Date: 20191211
  Transmission Date: 20200122
  Serious: Yes (Hospitalization)
  Sender: FDA-Public Use
  Company Number: GB-PFIZER INC-2019530052

PATIENT
  Age: 8 Year
  Sex: Male
  Weight: 21 kg

DRUGS (8)
  1. IBUPROFEN. [Suspect]
     Active Substance: IBUPROFEN
     Indication: TOOTHACHE
     Dosage: 600 MG, 1X/DAY
     Route: 048
     Dates: end: 20191003
  2. OMEPRAZOLE. [Concomitant]
     Active Substance: OMEPRAZOLE
  3. CLONIDINE. [Concomitant]
     Active Substance: CLONIDINE
  4. PARACETAMOL [Concomitant]
     Active Substance: ACETAMINOPHEN
  5. HYOSCINE [Concomitant]
     Active Substance: SCOPOLAMINE
  6. MELATONIN [Concomitant]
     Active Substance: MELATONIN
  7. BACLOFEN. [Concomitant]
     Active Substance: BACLOFEN
  8. DIAZEPAM. [Concomitant]
     Active Substance: DIAZEPAM

REACTIONS (4)
  - Gastrointestinal haemorrhage [Recovered/Resolved]
  - Adenovirus infection [Unknown]
  - Diarrhoea haemorrhagic [Unknown]
  - Vomiting [Unknown]

NARRATIVE: CASE EVENT DATE: 20191001
